FAERS Safety Report 8449536-7 (Version None)
Quarter: 2012Q2

REPORT INFORMATION
  Report Type: 
  Country: None (occurrence: None)
  Receive Date: 20120620
  Receipt Date: 20120615
  Transmission Date: 20120825
  Serious: Yes (Other)
  Sender: FDA-Public Use
  Company Number: NL-AMGEN-NLDSP2012031722

PATIENT
  Age: 63 Year
  Sex: Female
  Weight: 90 kg

DRUGS (6)
  1. VITAMIN D [Concomitant]
  2. MORPHINE [Concomitant]
  3. CALCIUM [Concomitant]
  4. ARIMIDEX [Concomitant]
     Indication: BREAST CANCER
     Dosage: 1 MG, QD
     Dates: start: 20070101
  5. XGEVA [Suspect]
     Indication: PRODUCT USED FOR UNKNOWN INDICATION
     Dosage: UNK
  6. OSTAC [Concomitant]
     Dosage: UNK
     Dates: end: 20120417

REACTIONS (2)
  - ARRHYTHMIA [None]
  - HYPOCALCAEMIA [None]
